FAERS Safety Report 9255486 (Version 2)
Quarter: 2013Q2

REPORT INFORMATION
  Report Type: Spontaneous
  Country: US (occurrence: US)
  Receive Date: 20130425
  Receipt Date: 20130425
  Transmission Date: 20140414
  Serious: Yes (Disabling)
  Sender: FDA-Public Use
  Company Number: US-PERRIGO-12US010303

PATIENT
  Sex: Male

DRUGS (2)
  1. PERMETHRIN RX 5% 1T6 [Suspect]
     Indication: ACARODERMATITIS
     Dosage: ONE APPLICATION, SINGLE
     Route: 061
     Dates: start: 201101, end: 201101
  2. PERMETHRIN RX 5% 1T6 [Suspect]
     Dosage: ONE APPLICATION, SINGLE
     Route: 061
     Dates: start: 201102, end: 201102

REACTIONS (13)
  - Nerve injury [Not Recovered/Not Resolved]
  - Application site scar [Not Recovered/Not Resolved]
  - Infection [Unknown]
  - Rash pustular [Unknown]
  - Application site dryness [Unknown]
  - Application site inflammation [Not Recovered/Not Resolved]
  - Application site haemorrhage [Not Recovered/Not Resolved]
  - Application site fissure [Not Recovered/Not Resolved]
  - Skin tightness [Not Recovered/Not Resolved]
  - Application site pain [Not Recovered/Not Resolved]
  - Application site erythema [Unknown]
  - Application site pruritus [Unknown]
  - Skin disorder [Unknown]
